FAERS Safety Report 16121663 (Version 1)
Quarter: 2019Q1

REPORT INFORMATION
  Report Type: Spontaneous
  Country: DE (occurrence: DE)
  Receive Date: 20190327
  Receipt Date: 20190327
  Transmission Date: 20190418
  Serious: Yes (Hospitalization, Other)
  Sender: FDA-Public Use
  Company Number: DE-ACCORD-115592

PATIENT
  Age: 54 Year
  Sex: Male

DRUGS (8)
  1. CICLOSPORIN [Interacting]
     Active Substance: CYCLOSPORINE
     Indication: HEART TRANSPLANT
     Dosage: 70 MG, BID
     Dates: start: 1993
  2. VINCRISTINE [Interacting]
     Active Substance: VINCRISTINE
     Indication: NON-HODGKIN^S LYMPHOMA
  3. DOXORUBICIN [Interacting]
     Active Substance: DOXORUBICIN
     Indication: NON-HODGKIN^S LYMPHOMA
  4. CYCLOPHOSPHAMIDE/CYCLOPHOSPHAMIDE MONOHYDRATE [Interacting]
     Active Substance: CYCLOPHOSPHAMIDE
     Indication: NON-HODGKIN^S LYMPHOMA
  5. ETOPOSIDE. [Suspect]
     Active Substance: ETOPOSIDE
     Indication: NON-HODGKIN^S LYMPHOMA
  6. ZYLORIC [Concomitant]
     Active Substance: ALLOPURINOL
  7. CELLCEPT [Concomitant]
     Active Substance: MYCOPHENOLATE MOFETIL\MYCOPHENOLATE MOFETIL HYDROCHLORIDE
  8. ZOCOR DIECKMANN [Concomitant]

REACTIONS (3)
  - Drug interaction [Unknown]
  - Non-Hodgkin^s lymphoma [Unknown]
  - Abdominal pain [Unknown]
